FAERS Safety Report 6609604-9 (Version None)
Quarter: 2010Q1

REPORT INFORMATION
  Report Type: 
  Country: None (occurrence: None)
  Receive Date: 20100302
  Receipt Date: 20100223
  Transmission Date: 20100710
  Serious: Yes (Hospitalization)
  Sender: FDA-Public Use
  Company Number: JP-JNJFOC-20100300174

PATIENT
  Sex: Male
  Weight: 49 kg

DRUGS (6)
  1. REMICADE [Suspect]
     Indication: CROHN'S DISEASE
     Route: 042
  2. REMICADE [Suspect]
     Route: 042
  3. SOLU-MEDROL [Concomitant]
     Indication: PROPHYLAXIS
     Route: 042
  4. POLARAMINE [Concomitant]
     Indication: PROPHYLAXIS
     Route: 042
  5. ASPARA K [Concomitant]
     Route: 048
  6. LEUKERIN [Concomitant]
     Route: 048

REACTIONS (2)
  - BLOOD CREATINE PHOSPHOKINASE INCREASED [None]
  - BLOOD POTASSIUM DECREASED [None]
